FAERS Safety Report 23078612 (Version 4)
Quarter: 2023Q4

REPORT INFORMATION
  Report Type: Spontaneous
  Country: AR (occurrence: AR)
  Receive Date: 20231018
  Receipt Date: 20231030
  Transmission Date: 20240109
  Serious: Yes (Other)
  Sender: FDA-Public Use
  Company Number: AR-MYLANLABS-2023M1106074

PATIENT
  Age: 44 Year
  Sex: Male

DRUGS (6)
  1. CLOZAPINE [Suspect]
     Active Substance: CLOZAPINE
     Indication: Behavioural therapy
     Dosage: 50 MILLIGRAM
     Route: 065
     Dates: start: 20231001
  2. QUETIAPINE [Concomitant]
     Active Substance: QUETIAPINE
     Indication: Product used for unknown indication
     Dosage: 800 MILLIGRAM, QD
     Route: 065
  3. CLONAZEPAM [Concomitant]
     Active Substance: CLONAZEPAM
     Indication: Product used for unknown indication
     Dosage: 16 MILLIGRAM, QD
     Route: 065
  4. LEVOMEPROMAZINE [Concomitant]
     Active Substance: LEVOMEPROMAZINE
     Indication: Product used for unknown indication
     Dosage: 75 MILLIGRAM, QD
     Route: 065
  5. OLANZAPINE [Concomitant]
     Active Substance: OLANZAPINE
     Indication: Product used for unknown indication
     Dosage: 25 MILLIGRAM, QD
     Route: 065
  6. ZUCLOPENTHIXOL [Concomitant]
     Active Substance: ZUCLOPENTHIXOL
     Indication: Product used for unknown indication
     Dosage: 200 MILLILITER, ONE AMPOULE MONTHLY
     Route: 065

REACTIONS (4)
  - Neutropenia [Not Recovered/Not Resolved]
  - Leukopenia [Recovered/Resolved]
  - Off label use [Unknown]
  - Therapy cessation [Unknown]

NARRATIVE: CASE EVENT DATE: 20231001
